FAERS Safety Report 15265537 (Version 1)
Quarter: 2018Q3

REPORT INFORMATION
  Report Type: Spontaneous
  Country: US (occurrence: US)
  Receive Date: 20180723
  Receipt Date: 20180723
  Transmission Date: 20181010
  Serious: Yes (Hospitalization, Other)
  Sender: FDA-Public Use
  Company Number: None

PATIENT
  Sex: Male

DRUGS (3)
  1. CARFILZOMIB [Suspect]
     Active Substance: CARFILZOMIB
  2. LENALIDOMIDE [Concomitant]
     Active Substance: LENALIDOMIDE
  3. DEXAMETHASONE. [Concomitant]
     Active Substance: DEXAMETHASONE

REACTIONS (5)
  - Pneumonia [None]
  - Blood creatinine increased [None]
  - Pyrexia [None]
  - Hyperthermia [None]
  - Renal tubular necrosis [None]
